FAERS Safety Report 4334982-3 (Version None)
Quarter: 2004Q2

REPORT INFORMATION
  Report Type: 
  Country: None (occurrence: None)
  Receive Date: 20040408
  Receipt Date: 20040218
  Transmission Date: 20050107
  Serious: Yes (Death)
  Sender: FDA-Public Use
  Company Number: CH-ROCHE-359165

PATIENT
  Age: 61 Year
  Sex: Male
  Weight: 72.5 kg

DRUGS (2)
  1. TASMAR [Suspect]
     Indication: PARKINSON'S DISEASE
     Route: 048
     Dates: start: 20000805
  2. MADOPAR DR [Concomitant]
     Indication: PARKINSON'S DISEASE
     Route: 048

REACTIONS (10)
  - CARCINOID TUMOUR OF THE GASTROINTESTINAL TRACT [None]
  - CARDIAC FAILURE [None]
  - LIVER DISORDER [None]
  - LUNG DISORDER [None]
  - MULTI-ORGAN FAILURE [None]
  - MYOCARDIAL INFARCTION [None]
  - NEUROLEPTIC MALIGNANT SYNDROME [None]
  - PANCREATIC DISORDER [None]
  - QUADRUPLE VESSEL BYPASS GRAFT [None]
  - RENAL IMPAIRMENT [None]
